FAERS Safety Report 4889837-2 (Version None)
Quarter: 2006Q1

REPORT INFORMATION
  Report Type: 
  Country: None (occurrence: None)
  Receive Date: 20060120
  Receipt Date: 20060113
  Transmission Date: 20060701
  Serious: Yes (Life-Threatening)
  Sender: FDA-Public Use
  Company Number: 2006-137120-NL

PATIENT
  Age: 44 Year
  Sex: Female

DRUGS (8)
  1. MIRTAZAPINE [Suspect]
     Indication: DEPRESSION
     Dosage: 30 MG QD ORAL
     Route: 048
  2. MORPHINE [Suspect]
     Dosage: 37.5 MG INTRAVENOUS BOLUS
     Route: 040
     Dates: start: 20051206, end: 20051206
  3. GABAPENTIN [Suspect]
     Indication: NEURALGIA
     Dosage: 2700 MG ORAL
     Route: 048
  4. PROPOFOL [Concomitant]
  5. FENTANYL [Concomitant]
  6. ATRACURIUM [Concomitant]
  7. CLONIDINE [Concomitant]
  8. PARACETAMOL [Concomitant]

REACTIONS (6)
  - BRADYPNOEA [None]
  - CYANOSIS [None]
  - DRUG INTERACTION [None]
  - DRUG TOXICITY [None]
  - MIOSIS [None]
  - SEDATION [None]
